FAERS Safety Report 8195528-5 (Version None)
Quarter: 2012Q1

REPORT INFORMATION
  Report Type: 
  Country: None (occurrence: None)
  Receive Date: 20120308
  Receipt Date: 20120302
  Transmission Date: 20120608
  Serious: Yes (Hospitalization)
  Sender: FDA-Public Use
  Company Number: JP-PFIZER INC-2012057225

PATIENT
  Age: 75 Year
  Sex: Female

DRUGS (2)
  1. ZITHROMAX [Suspect]
     Dosage: 500 MG, 1X/DAY
     Route: 048
     Dates: start: 20111107, end: 20111109
  2. MEFENAMIC ACID [Suspect]
     Dosage: UNK
     Route: 048

REACTIONS (1)
  - STEVENS-JOHNSON SYNDROME [None]
